FAERS Safety Report 7550795-3 (Version None)
Quarter: 2011Q2

REPORT INFORMATION
  Report Type: 
  Country: None (occurrence: None)
  Receive Date: 20110609
  Receipt Date: 20110609
  Transmission Date: 20111010
  Serious: Yes (Other)
  Sender: FDA-Public Use
  Company Number: DSU-2011-03966

PATIENT
  Age: 62 Year
  Sex: Female
  Weight: 147.8726 kg

DRUGS (14)
  1. PRAVASTATIN (PRACASTATIN) [Concomitant]
  2. QVAR [Concomitant]
  3. METOLAZONE [Concomitant]
  4. CIPROFLOXACIN [Concomitant]
  5. POTASSIUM CHLORIDE [Concomitant]
  6. VITAMIN D (ERGOCALCIFEROL) (ERGOCALCIFEROL) [Concomitant]
  7. FISH OIL (FISH OIL) (FISH OIL) [Concomitant]
  8. AVAPRO [Concomitant]
  9. CENTRUM (VITAMINS NOS, MINERALS NOS) (VITAMINS NOS, MINERAL NOS) [Concomitant]
  10. CALTRATE (CALCIUM CARBONATE) (CALCIUM CARBONATE) [Concomitant]
  11. BENICAR [Suspect]
     Indication: HYPERTENSION
     Dosage: 40 MG (40 MG,QD), PER ORAL
     Route: 048
     Dates: start: 20110201, end: 20110501
  12. METFORMIN HCL [Concomitant]
  13. FLUTICASONE PROPIONATE [Concomitant]
  14. MAGNESIUM (MAGNESIUM) [Concomitant]

REACTIONS (3)
  - BLOOD PRESSURE DIASTOLIC DECREASED [None]
  - UTERINE DILATION AND CURETTAGE [None]
  - WEIGHT DECREASED [None]
